FAERS Safety Report 14183601 (Version 1)
Quarter: 2017Q4

REPORT INFORMATION
  Report Type: Report from Study
  Country: IE (occurrence: IE)
  Receive Date: 20171113
  Receipt Date: 20171113
  Transmission Date: 20180321
  Serious: Yes (Death, Other)
  Sender: FDA-Public Use
  Company Number: IE-BRISTOL-MYERS SQUIBB COMPANY-BMS-2017-102648

PATIENT
  Age: 73 Year

DRUGS (1)
  1. NIVOLUMAB [Suspect]
     Active Substance: NIVOLUMAB
     Indication: PRODUCT USED FOR UNKNOWN INDICATION
     Dosage: UNK
     Route: 042
     Dates: start: 20151218, end: 20161024

REACTIONS (1)
  - Death [Fatal]
